FAERS Safety Report 11094616 (Version 3)
Quarter: 2016Q1

REPORT INFORMATION
  Report Type: Spontaneous
  Country: US (occurrence: US)
  Receive Date: 20150506
  Receipt Date: 20160311
  Transmission Date: 20160525
  Serious: No
  Sender: FDA-Public Use
  Company Number: US-PFIZER INC-2015147617

PATIENT
  Age: 69 Year
  Sex: Female
  Weight: 79 kg

DRUGS (20)
  1. ASPIRIN (E.C.) [Concomitant]
     Active Substance: ASPIRIN
     Dosage: 162 MG, DAILY (81 MG, TAKE 2 TABLETS)
     Route: 048
  2. CINNAMON. [Concomitant]
     Active Substance: CINNAMON
     Dosage: 1000 MG, DAILY (500 MG CAPSULE)
     Route: 048
  3. FISH OIL OMEGA 3 [Concomitant]
     Dosage: 2 G, DAILY
     Route: 048
  4. ZOCOR [Concomitant]
     Active Substance: SIMVASTATIN
     Dosage: 20 MG, 1X/DAY (NIGHTLY)
     Route: 048
  5. SIMVASTATIN. [Concomitant]
     Active Substance: SIMVASTATIN
     Indication: BLOOD CHOLESTEROL ABNORMAL
  6. MAGNESIUM CITRATE. [Concomitant]
     Active Substance: MAGNESIUM CITRATE
     Dosage: 1 DF, DAILY
     Route: 048
  7. COUMADIN [Concomitant]
     Active Substance: WARFARIN SODIUM
     Dosage: 2 MG, DAILY
     Route: 048
  8. COUMADIN [Concomitant]
     Active Substance: WARFARIN SODIUM
     Dosage: 5 MG, DAILY
     Route: 048
  9. LANTUS [Concomitant]
     Active Substance: INSULIN GLARGINE
     Indication: TYPE 2 DIABETES MELLITUS
     Dosage: 45 IU, 1X/DAY (INJECT 45 UNITS INTO THE SKIN NIGHTLY)
  10. JANUMET [Concomitant]
     Active Substance: METFORMIN HYDROCHLORIDE\SITAGLIPTIN PHOSPHATE
     Indication: DIABETES MELLITUS
     Dosage: 1 DF, 2X/DAY (50 MG SITAGLIPTIN/1000 MG METFORMIN, WITH MEALS)
     Route: 048
  11. LISINOPRIL. [Concomitant]
     Active Substance: LISINOPRIL
  12. EPIPEN JR [Concomitant]
     Active Substance: EPINEPHRINE
     Dosage: 0.15 MG, AS NEEDED (0.15 MG/0.3 ML, INTO MUSCLE)
     Route: 030
  13. LYRICA [Suspect]
     Active Substance: PREGABALIN
     Indication: DIABETIC NEUROPATHY
     Dosage: 150 MG, 2X/DAY
     Route: 048
     Dates: start: 2008
  14. NORVASC [Concomitant]
     Active Substance: AMLODIPINE BESYLATE
     Dosage: 5 MG, DAILY
     Route: 048
  15. DIOVAN [Concomitant]
     Active Substance: VALSARTAN
     Dosage: 320 MG, DAILY
     Route: 048
  16. FLAXSEED [Concomitant]
     Active Substance: FLAX SEED
     Dosage: 1000 MG, DAILY
     Route: 048
  17. MORPHINE [Concomitant]
     Active Substance: MORPHINE
  18. ZYRTEC [Concomitant]
     Active Substance: CETIRIZINE HYDROCHLORIDE
     Dosage: 10 MG, AS NEEDED (DAILY)
     Route: 048
  19. COENZYME Q10 [Concomitant]
     Active Substance: UBIDECARENONE
     Dosage: 30 MG, DAILY
     Route: 048
  20. MULTIVITAMIN AND MINERAL [Concomitant]
     Dosage: 1 DF, DAILY
     Route: 048

REACTIONS (2)
  - Pain in extremity [Not Recovered/Not Resolved]
  - Gait disturbance [Not Recovered/Not Resolved]
